FAERS Safety Report 17591206 (Version 5)
Quarter: 2020Q2

REPORT INFORMATION
  Report Type: Report from Study
  Country: US (occurrence: US)
  Receive Date: 20200327
  Receipt Date: 20200519
  Transmission Date: 20200713
  Serious: Yes (Other)
  Sender: FDA-Public Use
  Company Number: NVSC2020US068650

PATIENT
  Age: 70 Year
  Sex: Male
  Weight: 118.38 kg

DRUGS (20)
  1. DEXAMETHASONE. [Concomitant]
     Active Substance: DEXAMETHASONE
     Indication: ENDOPHTHALMITIS
     Dosage: UNK
     Route: 065
     Dates: start: 20200223, end: 20200223
  2. TIMOLOL. [Concomitant]
     Active Substance: TIMOLOL
     Indication: GLAUCOMA
     Dosage: UNK
     Route: 065
     Dates: start: 20161201
  3. MOXIFLOXACIN. [Concomitant]
     Active Substance: MOXIFLOXACIN
     Indication: ENDOPHTHALMITIS
     Dosage: UNK
     Route: 065
     Dates: start: 20200225
  4. CEFTAZIDIM [Concomitant]
     Active Substance: CEFTAZIDIME
     Indication: ENDOPHTHALMITIS
     Route: 065
     Dates: start: 20200224, end: 20200224
  5. BEOVU [Suspect]
     Active Substance: BROLUCIZUMAB-DBLL
     Indication: NEOVASCULAR AGE-RELATED MACULAR DEGENERATION
     Dosage: 6MG/0.05ML
     Route: 031
     Dates: start: 20190906, end: 20200221
  6. LATANOPROST. [Concomitant]
     Active Substance: LATANOPROST
     Indication: GLAUCOMA
     Dosage: UNK
     Route: 065
     Dates: start: 20161201
  7. PREDNISOLONE. [Concomitant]
     Active Substance: PREDNISOLONE
     Dosage: UNK
     Route: 065
     Dates: start: 20200312, end: 20200319
  8. CEFTAZIDIME. [Concomitant]
     Active Substance: CEFTAZIDIME
     Dosage: UNK
     Route: 065
     Dates: start: 20200224, end: 20200224
  9. ATROPINE. [Concomitant]
     Active Substance: ATROPINE
     Indication: ENDOPHTHALMITIS
     Dosage: UNK
     Route: 065
     Dates: start: 20200225
  10. ERYTHROMYCIN. [Concomitant]
     Active Substance: ERYTHROMYCIN
     Indication: ENDOPHTHALMITIS
     Dosage: UNK
     Route: 065
     Dates: start: 20200225
  11. VANCOMYCIN [Concomitant]
     Active Substance: VANCOMYCIN
     Indication: ENDOPHTHALMITIS
     Dosage: UNK
     Route: 065
     Dates: start: 20200223, end: 20200223
  12. CEFTAZIDIME. [Concomitant]
     Active Substance: CEFTAZIDIME
     Indication: ENDOPHTHALMITIS
     Dosage: UNK
     Route: 065
     Dates: start: 20200223, end: 20200223
  13. SERTRALINE [Concomitant]
     Active Substance: SERTRALINE HYDROCHLORIDE
     Indication: DEPRESSION
     Dosage: UNK
     Route: 065
     Dates: start: 20180701
  14. DUREZOL [Concomitant]
     Active Substance: DIFLUPREDNATE
     Indication: ENDOPHTHALMITIS
     Dosage: UNK
     Route: 065
     Dates: start: 20200225
  15. VANCOMYCIN [Concomitant]
     Active Substance: VANCOMYCIN
     Dosage: UNK
     Route: 065
     Dates: start: 20200224, end: 20200224
  16. DEXAMETHASONE. [Concomitant]
     Active Substance: DEXAMETHASONE
     Dosage: UNK
     Route: 065
     Dates: start: 20200224, end: 20200224
  17. PREDNISOLONE. [Concomitant]
     Active Substance: PREDNISOLONE
     Indication: ENDOPHTHALMITIS
     Dosage: UNK
     Route: 065
     Dates: start: 20200225, end: 20200303
  18. PREDNISOLONE. [Concomitant]
     Active Substance: PREDNISOLONE
     Dosage: UNK
     Route: 065
     Dates: start: 20200304, end: 20200311
  19. AVELOX [Concomitant]
     Active Substance: MOXIFLOXACIN HYDROCHLORIDE
     Indication: ENDOPHTHALMITIS
     Dosage: UNK
     Route: 065
     Dates: start: 20200225, end: 20200303
  20. ASPIRIN. [Concomitant]
     Active Substance: ASPIRIN
     Indication: GENERAL PHYSICAL CONDITION
     Dosage: UNK
     Route: 065
     Dates: start: 20161201

REACTIONS (2)
  - Vitreous haze [Recovered/Resolved]
  - Alpha haemolytic streptococcal infection [Recovered/Resolved]

NARRATIVE: CASE EVENT DATE: 20200224
